FAERS Safety Report 7051520-5 (Version None)
Quarter: 2010Q4

REPORT INFORMATION
  Report Type: 
  Country: None (occurrence: None)
  Receive Date: 20101019
  Receipt Date: 20101005
  Transmission Date: 20110411
  Serious: Yes (Hospitalization, Other)
  Sender: FDA-Public Use
  Company Number: PHHY2010FR62395

PATIENT
  Sex: Female

DRUGS (1)
  1. CGP 57148B T35717+ [Suspect]
     Indication: CHRONIC MYELOID LEUKAEMIA
     Dosage: 400 MG, QD
     Dates: start: 20010831

REACTIONS (7)
  - BACTERIAL PYELONEPHRITIS [None]
  - C-REACTIVE PROTEIN INCREASED [None]
  - CHILLS [None]
  - ESCHERICHIA TEST POSITIVE [None]
  - FEMORAL NECK FRACTURE [None]
  - HEADACHE [None]
  - PYREXIA [None]
